FAERS Safety Report 17765676 (Version 3)
Quarter: 2021Q2

REPORT INFORMATION
  Report Type: Spontaneous
  Country: US (occurrence: US)
  Receive Date: 20200511
  Receipt Date: 20210517
  Transmission Date: 20210716
  Serious: No
  Sender: FDA-Public Use
  Company Number: US-SA-2020SA120716

PATIENT
  Age: 66 Year
  Sex: Male
  Weight: 88.45 kg

DRUGS (1)
  1. CAPRELSA [Suspect]
     Active Substance: VANDETANIB
     Indication: THYROID CANCER
     Dosage: 100 MG, QD
     Route: 048
     Dates: start: 20131008

REACTIONS (5)
  - Renal disorder [Unknown]
  - Skin laceration [Unknown]
  - Skin exfoliation [Unknown]
  - Photosensitivity reaction [Unknown]
  - Treatment noncompliance [Unknown]
